FAERS Safety Report 11813714 (Version 1)
Quarter: 2015Q4

REPORT INFORMATION
  Report Type: Spontaneous
  Country: US (occurrence: None)
  Receive Date: 20151208
  Receipt Date: 20151208
  Transmission Date: 20160305
  Serious: Yes (Hospitalization)
  Sender: FDA-Public Use
  Company Number: None

PATIENT
  Age: 66 Year
  Sex: Female
  Weight: 65.77 kg

DRUGS (14)
  1. OMBITASVIR/PARITAPREVIR/RITONAVIR+DASABUVIR [Suspect]
     Active Substance: DASABUVIR\OMBITASVIR\PARITAPREVIR\RITONAVIR
     Indication: HEPATITIS C
     Dosage: VIEKIRA PAK 3 TABS BID PO
     Route: 048
     Dates: start: 20150515, end: 20150807
  2. CHOLECALCIFEROL (VITAMIN D) [Concomitant]
  3. SODIUM BICARBONATE. [Concomitant]
     Active Substance: SODIUM BICARBONATE
  4. ASPIRIN. [Concomitant]
     Active Substance: ASPIRIN
  5. LORAZEPAM (ATIVAN) [Concomitant]
  6. MULTIVITAMINS-IRON-MINERALS-FOLIC ACID [Concomitant]
  7. IMODIUM [Concomitant]
     Active Substance: LOPERAMIDE HYDROCHLORIDE
  8. OMEPRAZOLE (PRILOSEC) [Concomitant]
  9. DENOSUMAB (PROLIA SUBQ) [Concomitant]
  10. VITAMIN B12 [Concomitant]
     Active Substance: CYANOCOBALAMIN
  11. LEVOTHYROXINE (SYNTHROID, LEVOTHROID) [Concomitant]
  12. BIOTIN [Concomitant]
     Active Substance: BIOTIN
  13. CALCITRIOL. [Concomitant]
     Active Substance: CALCITRIOL
  14. LEXAPRO [Concomitant]
     Active Substance: ESCITALOPRAM OXALATE

REACTIONS (10)
  - Feeling abnormal [None]
  - Dyspnoea exertional [None]
  - Asthenia [None]
  - Cat scratch disease [None]
  - Fatigue [None]
  - Dehydration [None]
  - Palpitations [None]
  - Tinnitus [None]
  - Decreased appetite [None]
  - Nausea [None]

NARRATIVE: CASE EVENT DATE: 20150722
